FAERS Safety Report 9182758 (Version 1)
Quarter: 2013Q1

REPORT INFORMATION
  Report Type: Spontaneous
  Country: US (occurrence: US)
  Receive Date: 20130322
  Receipt Date: 20130322
  Transmission Date: 20140127
  Serious: No
  Sender: FDA-Public Use
  Company Number: US-BRISTOL-MYERS SQUIBB COMPANY-17111998

PATIENT
  Sex: Female

DRUGS (1)
  1. ERBITUX [Suspect]
     Dates: start: 201211

REACTIONS (5)
  - Headache [Unknown]
  - Tremor [Unknown]
  - Lacrimation increased [Unknown]
  - Pain [Unknown]
  - Chills [Unknown]
